FAERS Safety Report 25365982 (Version 1)
Quarter: 2025Q2

REPORT INFORMATION
  Report Type: Spontaneous
  Country: IT (occurrence: IT)
  Receive Date: 20250528
  Receipt Date: 20250528
  Transmission Date: 20250716
  Serious: Yes (Other)
  Sender: INDOCO REMEDIES LIMITED
  Company Number: IT-INDOCO-IND-2025-IT-LIT-00574

PATIENT

DRUGS (2)
  1. LACOSAMIDE [Suspect]
     Active Substance: LACOSAMIDE
     Indication: Seizure
     Route: 065
  2. TEMOZOLOMIDE [Concomitant]
     Active Substance: TEMOZOLOMIDE
     Indication: Radiochemotherapy
     Route: 065

REACTIONS (1)
  - Gastrointestinal toxicity [Unknown]
